FAERS Safety Report 11499522 (Version 1)
Quarter: 2015Q3

REPORT INFORMATION
  Report Type: Spontaneous
  Country: US (occurrence: US)
  Receive Date: 20150914
  Receipt Date: 20150914
  Transmission Date: 20151125
  Serious: No
  Sender: FDA-Public Use
  Company Number: US-009507513-1508USA007962

PATIENT
  Age: 24 Year
  Sex: Female

DRUGS (1)
  1. NEXPLANON [Suspect]
     Active Substance: ETONOGESTREL
     Indication: CONTRACEPTION
     Dosage: UNK
     Route: 059
     Dates: start: 20150710, end: 20150729

REACTIONS (4)
  - Implant site swelling [Unknown]
  - Implant site discolouration [Unknown]
  - Skin disorder [Unknown]
  - Implant site pain [Unknown]

NARRATIVE: CASE EVENT DATE: 201507
